FAERS Safety Report 6260822-1 (Version None)
Quarter: 2009Q3

REPORT INFORMATION
  Report Type: 
  Country: None (occurrence: None)
  Receive Date: 20090707
  Receipt Date: 20090622
  Transmission Date: 20100115
  Serious: Yes (Hospitalization)
  Sender: FDA-Public Use
  Company Number: IDA-00223

PATIENT
  Age: 64 Year
  Sex: Female

DRUGS (9)
  1. INDERAL [Suspect]
     Dosage: 160 MG DAILY, ORAL / 80 MG DAILY , ORAL
     Route: 048
     Dates: start: 20070101, end: 20080526
  2. EFFEXOR [Suspect]
     Dosage: 37.5 MG DAILY / 112.5 MG DAILY / 150 MG ; ORAL
     Route: 048
     Dates: start: 20080501, end: 20080517
  3. EFFEXOR [Suspect]
     Dosage: 37.5 MG DAILY / 112.5 MG DAILY / 150 MG ; ORAL
     Route: 048
     Dates: start: 20080518, end: 20080528
  4. EFFEXOR [Suspect]
     Dosage: 37.5 MG DAILY / 112.5 MG DAILY / 150 MG ; ORAL
     Route: 048
     Dates: start: 20080529, end: 20080711
  5. NEO-MERCAZOLE TAB [Suspect]
     Dosage: 10 MG DAILY, ORAL / 5 MG DAILY, ORAL
     Route: 048
     Dates: start: 20080301, end: 20080725
  6. NEO-MERCAZOLE TAB [Suspect]
     Dosage: 10 MG DAILY, ORAL / 5 MG DAILY, ORAL
     Route: 048
     Dates: start: 20080726
  7. ATORVASTATIN CALCIUM [Concomitant]
  8. DIOVAN HCT [Concomitant]
  9. DIPIPERON (PIPAMPERONE HYDROCHLORIDE) [Concomitant]

REACTIONS (7)
  - ARTERIOSCLEROSIS [None]
  - DECREASED APPETITE [None]
  - DEPRESSION [None]
  - DRUG INTERACTION [None]
  - GASTRITIS [None]
  - NAUSEA [None]
  - VASCULAR ENCEPHALOPATHY [None]
